FAERS Safety Report 9954573 (Version 2)
Quarter: 2014Q2

REPORT INFORMATION
  Report Type: Spontaneous
  Country: US (occurrence: US)
  Receive Date: 20140304
  Receipt Date: 20140402
  Transmission Date: 20141212
  Serious: Yes (Other)
  Sender: FDA-Public Use
  Company Number: US-AMGEN-USASP2014007666

PATIENT
  Age: 53 Year
  Sex: Female
  Weight: 85.26 kg

DRUGS (1)
  1. ENBREL [Suspect]
     Indication: RHEUMATOID ARTHRITIS
     Dosage: 50 MG, QWK
     Route: 058
     Dates: start: 20131113

REACTIONS (6)
  - Tooth abscess [Recovered/Resolved]
  - Toothache [Recovered/Resolved]
  - Eye pain [Recovered/Resolved]
  - Rhinalgia [Recovered/Resolved]
  - Local swelling [Recovered/Resolved]
  - Abscess jaw [Recovered/Resolved]
